FAERS Safety Report 8175379-8 (Version None)
Quarter: 2012Q1

REPORT INFORMATION
  Report Type: 
  Country: None (occurrence: None)
  Receive Date: 20120229
  Receipt Date: 20120223
  Transmission Date: 20120608
  Serious: Yes (Other)
  Sender: FDA-Public Use
  Company Number: US-PFIZER INC-2012048849

PATIENT
  Sex: Female

DRUGS (1)
  1. CELEBREX [Suspect]
     Dosage: UNK

REACTIONS (4)
  - SPINAL COLUMN INJURY [None]
  - SKULL FRACTURE [None]
  - FACIAL BONES FRACTURE [None]
  - FALL [None]
